FAERS Safety Report 5737087-X (Version None)
Quarter: 2008Q2

REPORT INFORMATION
  Report Type: 
  Country: None (occurrence: None)
  Receive Date: 20080513
  Receipt Date: 20080513
  Transmission Date: 20081010
  Serious: Yes (Hospitalization)
  Sender: FDA-Public Use
  Company Number: None

PATIENT
  Age: 32 Year
  Sex: Female
  Weight: 81.6475 kg

DRUGS (2)
  1. DIGITEK BERTEK [Suspect]
     Indication: TACHYARRHYTHMIA
     Dosage: PO
     Route: 048
     Dates: start: 20071211, end: 20071229
  2. DIGITEK BERTEK [Suspect]
     Indication: TWIN PREGNANCY
     Dosage: PO
     Route: 048
     Dates: start: 20071211, end: 20071229

REACTIONS (6)
  - DIZZINESS [None]
  - DRUG EXPOSURE DURING PREGNANCY [None]
  - DRUG INTOLERANCE [None]
  - LETHARGY [None]
  - NAUSEA [None]
  - VOMITING [None]
